FAERS Safety Report 13095661 (Version 1)
Quarter: 2017Q1

REPORT INFORMATION
  Report Type: Spontaneous
  Country: US (occurrence: US)
  Receive Date: 20170109
  Receipt Date: 20170109
  Transmission Date: 20170428
  Serious: No
  Sender: FDA-Public Use
  Company Number: US-AUROBINDO-AUR-APU-2016-03592

PATIENT
  Sex: Male

DRUGS (2)
  1. LOVENOX [Concomitant]
     Active Substance: ENOXAPARIN SODIUM
     Indication: ANTICOAGULANT THERAPY
     Dosage: FOR EVERY 12 HOURS
     Route: 065
  2. CEPHALEXIN CAPSULES USP 250 MG [Suspect]
     Active Substance: CEPHALEXIN
     Indication: LOCALISED INFECTION
     Dosage: ONE CAPSULE ORALLY FOR EVERY 6 HOURS
     Route: 048
     Dates: start: 20160305

REACTIONS (2)
  - No adverse event [Unknown]
  - Drug administration error [Unknown]
